FAERS Safety Report 6150324-5 (Version None)
Quarter: 2009Q2

REPORT INFORMATION
  Report Type: 
  Country: None (occurrence: None)
  Receive Date: 20090408
  Receipt Date: 20090408
  Transmission Date: 20091009
  Serious: No
  Sender: FDA-Public Use
  Company Number: None

PATIENT
  Age: 86 Year
  Sex: Male
  Weight: 97 kg

DRUGS (1)
  1. SITAGLIPTIN [Suspect]
     Dosage: 50 MG EVERYDAY PO
     Route: 048

REACTIONS (2)
  - LIP SWELLING [None]
  - SWOLLEN TONGUE [None]
